FAERS Safety Report 10019790 (Version 2)
Quarter: 2014Q1

REPORT INFORMATION
  Report Type: Spontaneous
  Country: US (occurrence: US)
  Receive Date: 20140318
  Receipt Date: 20140326
  Transmission Date: 20141002
  Serious: Yes (Hospitalization)
  Sender: FDA-Public Use
  Company Number: US-LUNDBECK-DKLU1098187

PATIENT
  Age: 8 Year
  Sex: Male

DRUGS (2)
  1. SABRIL (TABLET) [Suspect]
     Indication: INFANTILE SPASMS
     Dates: start: 20111013
  2. SABRIL (TABLET) [Suspect]
     Dates: start: 20111013

REACTIONS (1)
  - Craniotomy [Recovered/Resolved]
